FAERS Safety Report 10010508 (Version 2)
Quarter: 2014Q1

REPORT INFORMATION
  Report Type: Spontaneous
  Country: FR (occurrence: FR)
  Receive Date: 20140314
  Receipt Date: 20140314
  Transmission Date: 20141002
  Serious: Yes (Hospitalization)
  Sender: FDA-Public Use
  Company Number: FR-ROCHE-1322119

PATIENT
  Age: 57 Year
  Sex: Female

DRUGS (15)
  1. ROVALCYTE [Suspect]
     Indication: PROPHYLAXIS
     Dosage: TREATMENT DURATION= 5 MONTHS
     Route: 048
     Dates: start: 20130609, end: 20131126
  2. BACTRIM [Suspect]
     Indication: PROPHYLAXIS
     Route: 065
     Dates: start: 20130609, end: 20130904
  3. MYFORTIC [Suspect]
     Indication: PRODUCT USED FOR UNKNOWN INDICATION
     Dosage: TREATMENT DURATION= 5 MONTHS
     Route: 048
     Dates: start: 201306
  4. MYFORTIC [Suspect]
     Route: 048
     Dates: start: 20130904, end: 20131122
  5. MYFORTIC [Suspect]
     Route: 048
     Dates: end: 20140106
  6. MYFORTIC [Suspect]
     Route: 048
     Dates: start: 20140106, end: 20140122
  7. ADVAGRAF [Concomitant]
  8. DEPAMIDE [Concomitant]
  9. HALDOL [Concomitant]
  10. HYPERIUM [Concomitant]
  11. INEXIUM [Concomitant]
  12. LEVOTHYROX [Concomitant]
  13. MIMPARA [Concomitant]
  14. CYAMEMAZINE [Concomitant]
  15. TRANDATE [Concomitant]

REACTIONS (1)
  - Febrile neutropenia [Recovered/Resolved]
